FAERS Safety Report 12847439 (Version 1)
Quarter: 2016Q4

REPORT INFORMATION
  Report Type: Spontaneous
  Country: US (occurrence: US)
  Receive Date: 20161013
  Receipt Date: 20161013
  Transmission Date: 20170207
  Serious: No
  Sender: FDA-Public Use
  Company Number: None

PATIENT

DRUGS (1)
  1. TESTOSTERONE CYPIONATE INJECTION [Suspect]
     Active Substance: TESTOSTERONE CYPIONATE
     Indication: BLOOD TESTOSTERONE DECREASED
     Route: 051

REACTIONS (2)
  - Drug dispensing error [None]
  - Product preparation error [None]

NARRATIVE: CASE EVENT DATE: 20161013
